FAERS Safety Report 7359739-0 (Version None)
Quarter: 2011Q1

REPORT INFORMATION
  Report Type: 
  Country: None (occurrence: None)
  Receive Date: 20110317
  Receipt Date: 20110315
  Transmission Date: 20110831
  Serious: Yes (Other)
  Sender: FDA-Public Use
  Company Number: JP-PFIZER INC-2011034955

PATIENT
  Age: 82 Year
  Sex: Female
  Weight: 41.2 kg

DRUGS (5)
  1. FAMOGAST [Concomitant]
     Indication: DUODENAL ULCER
     Dosage: 20 MG, 1X/DAY
     Route: 048
     Dates: start: 20100918
  2. NORVASC [Suspect]
     Indication: HYPERTENSION
     Dosage: 5 MG, 1X/DAY
     Route: 048
  3. GASTER [Concomitant]
     Indication: DUODENAL ULCER
     Dosage: 20 MG, 1X/DAY
     Route: 048
     Dates: end: 20100917
  4. LYRICA [Suspect]
     Indication: TRIGEMINAL NEURALGIA
     Dosage: 75 MG, 2X/DAY
     Route: 048
     Dates: start: 20110119, end: 20110223
  5. RENIVACE [Concomitant]
     Indication: HYPERTENSION
     Dosage: 10 MG, 1X/DAY
     Route: 048

REACTIONS (4)
  - SOMNOLENCE [None]
  - COGNITIVE DISORDER [None]
  - ABNORMAL BEHAVIOUR [None]
  - BALANCE DISORDER [None]
